FAERS Safety Report 8342746-9 (Version None)
Quarter: 2012Q2

REPORT INFORMATION
  Report Type: 
  Country: None (occurrence: None)
  Receive Date: 20120503
  Receipt Date: 20101117
  Transmission Date: 20120825
  Serious: Yes (Hospitalization)
  Sender: FDA-Public Use
  Company Number: DE-021459

PATIENT
  Age: 80 Year
  Sex: Male

DRUGS (2)
  1. (CHLORAMBUCIL) [Suspect]
     Indication: CHRONIC LYMPHOCYTIC LEUKAEMIA
     Dosage: TABLET, 10MGM2 DAYS 1-7 EVERY 28 DAYS ORAL
     Route: 048
     Dates: start: 20090909
  2. (OFATUMUMAB) [Suspect]
     Indication: CHRONIC LYMPHOCYTIC LEUKAEMIA
     Dosage: INTRAVENOUS (NOT OTHERWISE SPECIFIED)
     Route: 042
     Dates: start: 20090909

REACTIONS (1)
  - ANAEMIA HAEMOLYTIC AUTOIMMUNE [None]
